FAERS Safety Report 18745088 (Version 2)
Quarter: 2021Q2

REPORT INFORMATION
  Report Type: Spontaneous
  Country: US (occurrence: US)
  Receive Date: 20210115
  Receipt Date: 20210520
  Transmission Date: 20210717
  Serious: Yes (Life-Threatening, Hospitalization, Other)
  Sender: FDA-Public Use
  Company Number: US-DRREDDYS-USA/USA/21/0130945

PATIENT
  Age: 20 Year
  Sex: Male

DRUGS (1)
  1. OLANZAPINE ODT 15 MG [Suspect]
     Active Substance: OLANZAPINE
     Indication: SCHIZOPHRENIFORM DISORDER
     Route: 048

REACTIONS (5)
  - Diabetes mellitus [Unknown]
  - Hypercholesterolaemia [Recovering/Resolving]
  - Diabetic ketoacidosis [Unknown]
  - Metabolic syndrome [Unknown]
  - Hypertriglyceridaemia [Unknown]
